FAERS Safety Report 8252941-5 (Version None)
Quarter: 2012Q2

REPORT INFORMATION
  Report Type: 
  Country: None (occurrence: None)
  Receive Date: 20120402
  Receipt Date: 20120224
  Transmission Date: 20120825
  Serious: No
  Sender: FDA-Public Use
  Company Number: US-ABBOTT-12P-163-0906735-00

PATIENT
  Age: 62 Year
  Sex: Male
  Weight: 127.12 kg

DRUGS (10)
  1. HYDROCHLOROTHIAZIDE [Concomitant]
     Indication: PRODUCT USED FOR UNKNOWN INDICATION
  2. TESTOSTERONE (ANDROGEL) [Suspect]
     Indication: BLOOD TESTOSTERONE DECREASED
     Route: 061
     Dates: end: 20120127
  3. ANDROGEL [Suspect]
     Dosage: 2 PUMPS DAILY
     Route: 061
     Dates: start: 20120201
  4. METFORMIN HCL [Concomitant]
     Indication: TYPE 2 DIABETES MELLITUS
  5. LISINOPRIL [Concomitant]
     Indication: HYPERTENSION
  6. NOVASTATIN [Concomitant]
     Indication: PRODUCT USED FOR UNKNOWN INDICATION
  7. LANTUS [Concomitant]
     Indication: TYPE 2 DIABETES MELLITUS
  8. ANDROGEL [Suspect]
     Indication: BLOOD TESTOSTERONE DECREASED
     Dosage: 4 PUMPS DAILY, 5000111 2E REV: MAR 2010 JAN 2013
     Route: 061
     Dates: start: 20120127, end: 20120201
  9. BYETTA [Concomitant]
     Indication: TYPE 2 DIABETES MELLITUS
  10. PROZAC [Concomitant]
     Indication: PRODUCT USED FOR UNKNOWN INDICATION

REACTIONS (5)
  - BLOOD TESTOSTERONE INCREASED [None]
  - BLOOD TESTOSTERONE DECREASED [None]
  - DIZZINESS [None]
  - MALAISE [None]
  - DRUG DOSE OMISSION [None]
